FAERS Safety Report 24046811 (Version 1)
Quarter: 2024Q3

REPORT INFORMATION
  Report Type: Report from Study
  Country: US (occurrence: US)
  Receive Date: 20240703
  Receipt Date: 20240703
  Transmission Date: 20241016
  Serious: Yes (Hospitalization)
  Sender: CALLIDITAS THERAPEUTICS
  Company Number: US-Calliditas-2024CAL01164

PATIENT
  Age: 36 Year
  Sex: Male
  Weight: 86.2 kg

DRUGS (1)
  1. TARPEYO [Suspect]
     Active Substance: BUDESONIDE
     Indication: IgA nephropathy
     Route: 048
     Dates: start: 20231121

REACTIONS (3)
  - Transient ischaemic attack [Unknown]
  - Fatigue [Unknown]
  - Hypertension [Unknown]
